FAERS Safety Report 18101429 (Version 2)
Quarter: 2020Q3

REPORT INFORMATION
  Report Type: Spontaneous
  Country: US (occurrence: US)
  Receive Date: 20200801
  Receipt Date: 20200827
  Transmission Date: 20201103
  Serious: No
  Sender: FDA-Public Use
  Company Number: US-ASTRAZENECA-2020SE93655

PATIENT
  Age: 20527 Day
  Sex: Male
  Weight: 68 kg

DRUGS (6)
  1. TRELEGEY [Concomitant]
     Indication: ASTHMA
  2. PROAIR HFA [Concomitant]
     Active Substance: ALBUTEROL SULFATE
     Dosage: RESCUE INHALER
  3. ATORVASTATIN [Concomitant]
     Active Substance: ATORVASTATIN
     Indication: BLOOD CHOLESTEROL
  4. TRELEGEY [Concomitant]
     Indication: DYSPNOEA
  5. VITAMINS [Concomitant]
     Active Substance: VITAMINS
  6. FASENRA [Suspect]
     Active Substance: BENRALIZUMAB
     Indication: EOSINOPHIL COUNT ABNORMAL
     Route: 058
     Dates: start: 20200621

REACTIONS (2)
  - Device defective [Unknown]
  - Injection site extravasation [Unknown]

NARRATIVE: CASE EVENT DATE: 20200720
